FAERS Safety Report 19709459 (Version 1)
Quarter: 2021Q3

REPORT INFORMATION
  Report Type: Other
  Country: CA (occurrence: CA)
  Receive Date: 20210817
  Receipt Date: 20210817
  Transmission Date: 20211014
  Serious: Yes (Other)
  Sender: FDA-Public Use
  Company Number: CA-GLENMARK PHARMACEUTICALS-2021GMK067281

PATIENT

DRUGS (3)
  1. PLAQUENIL [Suspect]
     Active Substance: HYDROXYCHLOROQUINE SULFATE
     Indication: ARTHRALGIA
     Dosage: UNK
     Route: 065
  2. OCALIVA [Suspect]
     Active Substance: OBETICHOLIC ACID
     Indication: PRIMARY BILIARY CHOLANGITIS
     Dosage: 5 MILLIGRAM, QW
     Route: 048
  3. URSODIOL. [Suspect]
     Active Substance: URSODIOL
     Indication: PRODUCT USED FOR UNKNOWN INDICATION
     Dosage: 750 MILLIGRAM, OD
     Route: 048

REACTIONS (19)
  - Suicidal ideation [Recovered/Resolved]
  - Diarrhoea [Recovered/Resolved]
  - Fatigue [Recovered/Resolved]
  - Somnolence [Recovered/Resolved]
  - Back pain [Recovered/Resolved]
  - Proctalgia [Recovered/Resolved]
  - Nausea [Recovered/Resolved]
  - Anal incontinence [Recovered/Resolved]
  - Muscle spasms [Recovered/Resolved]
  - Scab [Recovered/Resolved]
  - Frequent bowel movements [Recovered/Resolved]
  - Constipation [Recovered/Resolved]
  - Abdominal pain upper [Recovered/Resolved]
  - Rash [Recovered/Resolved]
  - Pruritus [Recovered/Resolved]
  - Insomnia [Recovered/Resolved]
  - Intentional self-injury [Recovered/Resolved]
  - Thinking abnormal [Recovered/Resolved]
  - Dyspepsia [Recovered/Resolved]
